FAERS Safety Report 5834079-7 (Version None)
Quarter: 2008Q3

REPORT INFORMATION
  Report Type: 
  Country: None (occurrence: None)
  Receive Date: 20080805
  Receipt Date: 20080731
  Transmission Date: 20090109
  Serious: Yes (Hospitalization, Other)
  Sender: FDA-Public Use
  Company Number: FR-BRISTOL-MYERS SQUIBB COMPANY-14234991

PATIENT
  Age: 64 Year
  Sex: Female

DRUGS (6)
  1. ORENCIA [Suspect]
     Indication: POLYARTHRITIS
     Dosage: 8 INFUSION OF ORENCIA
     Route: 042
     Dates: start: 20071001, end: 20080609
  2. ORENCIA [Suspect]
     Indication: RHEUMATOID ARTHRITIS
     Dosage: 8 INFUSION OF ORENCIA
     Route: 042
     Dates: start: 20071001, end: 20080609
  3. ARAVA [Suspect]
     Indication: RHEUMATOID ARTHRITIS
     Route: 048
     Dates: start: 20080301
  4. CORTANCYL [Suspect]
     Indication: RHEUMATOID ARTHRITIS
     Route: 048
  5. RITUXIMAB [Concomitant]
  6. BI-PROFENID [Concomitant]
     Route: 048

REACTIONS (2)
  - IMMUNOGLOBULINS DECREASED [None]
  - UROSEPSIS [None]
